FAERS Safety Report 17349350 (Version 1)
Quarter: 2020Q1

REPORT INFORMATION
  Report Type: Spontaneous
  Country: GB (occurrence: GB)
  Receive Date: 20200130
  Receipt Date: 20200130
  Transmission Date: 20200409
  Serious: Yes (Other)
  Sender: FDA-Public Use
  Company Number: GB-MYLANLABS-MK-6030564

PATIENT
  Age: 41 Year
  Sex: Female
  Weight: 82 kg

DRUGS (2)
  1. ZOPICLONE [Concomitant]
     Active Substance: ZOPICLONE
     Indication: SLEEP DISORDER
     Dosage: STOPPED: ^LAST WEEK^   7.5 MILLIGRAM
     Dates: start: 2003, end: 2007
  2. CITALOPRAM [Suspect]
     Active Substance: CITALOPRAM HYDROBROMIDE
     Indication: DEPRESSION
     Dosage: 20 MG,UNK
     Route: 048
     Dates: start: 20070127, end: 20070129

REACTIONS (2)
  - Rash [Recovered/Resolved]
  - Skin ulcer [Recovered/Resolved]

NARRATIVE: CASE EVENT DATE: 20070127
